FAERS Safety Report 8545643-9 (Version None)
Quarter: 2012Q3

REPORT INFORMATION
  Report Type: 
  Country: None (occurrence: None)
  Receive Date: 20120727
  Receipt Date: 20120723
  Transmission Date: 20120928
  Serious: Yes (Death)
  Sender: FDA-Public Use
  Company Number: JP-PFIZER INC-2012177900

PATIENT
  Age: 68 Year
  Sex: Female

DRUGS (2)
  1. REVATIO [Suspect]
     Dosage: 60 MG/DAY
     Route: 048
  2. CICLOSPORIN [Concomitant]
     Indication: INTERSTITIAL LUNG DISEASE
     Dosage: 150 MG/DAY

REACTIONS (1)
  - DEATH [None]
